FAERS Safety Report 6150889-3 (Version None)
Quarter: 2009Q2

REPORT INFORMATION
  Report Type: 
  Country: None (occurrence: None)
  Receive Date: 20090408
  Receipt Date: 20090403
  Transmission Date: 20091009
  Serious: Yes (Other)
  Sender: FDA-Public Use
  Company Number: CHPA2009US08467

PATIENT
  Age: 34 Year
  Sex: Male

DRUGS (3)
  1. GAX-X ULTRA STRENGTH (NCH) (SIMETHICONE) SOFT GELATIN CAPSULE [Suspect]
     Indication: FLATULENCE
     Dosage: 1 DF, QD, ORAL; 3 DF, ONCE/SINGLE, ORAL
     Route: 048
     Dates: end: 20090401
  2. GAX-X ULTRA STRENGTH (NCH) (SIMETHICONE) SOFT GELATIN CAPSULE [Suspect]
     Indication: FLATULENCE
     Dosage: 1 DF, QD, ORAL; 3 DF, ONCE/SINGLE, ORAL
     Route: 048
     Dates: start: 20090402, end: 20090402
  3. DRUG THERAPY NOS (DRUG THERAPY NOS) [Concomitant]

REACTIONS (4)
  - ACCIDENTAL OVERDOSE [None]
  - HAEMATOCHEZIA [None]
  - INFARCTION [None]
  - NAUSEA [None]
